FAERS Safety Report 9096572 (Version 2)
Quarter: 2013Q2

REPORT INFORMATION
  Report Type: Spontaneous
  Country: US (occurrence: None)
  Receive Date: 20130124
  Receipt Date: 20130531
  Transmission Date: 20140414
  Serious: Yes (Hospitalization, Other)
  Sender: FDA-Public Use
  Company Number: JPI-P-029023

PATIENT
  Age: 69 Year
  Sex: Female
  Weight: 74.84 kg

DRUGS (5)
  1. XYREM [Suspect]
     Indication: CATAPLEXY
     Route: 048
     Dates: start: 200607
  2. METHAMPHETAMINE [Concomitant]
  3. ASPIRIN [Concomitant]
  4. SIMVASTATIN [Concomitant]
  5. ATENOLOL [Concomitant]

REACTIONS (5)
  - Fall [None]
  - Hip fracture [None]
  - Vascular graft [None]
  - Cataplexy [None]
  - Cardiac stress test abnormal [None]
